FAERS Safety Report 6209904-0 (Version None)
Quarter: 2009Q2

REPORT INFORMATION
  Report Type: 
  Country: None (occurrence: None)
  Receive Date: 20090601
  Receipt Date: 20090518
  Transmission Date: 20091009
  Serious: Yes (Life-Threatening, Hospitalization, Other)
  Sender: FDA-Public Use
  Company Number: IS-PFIZER INC-2009218697

PATIENT

DRUGS (4)
  1. CHAMPIX [Suspect]
  2. LANTUS [Concomitant]
  3. HUMALOG [Concomitant]
  4. ATORVASTATIN CALCIUM [Concomitant]
     Dosage: 20 MG, 1X/DAY

REACTIONS (2)
  - HYPOGLYCAEMIA [None]
  - NERVOUS SYSTEM DISORDER [None]
